FAERS Safety Report 17932368 (Version 1)
Quarter: 2020Q2

REPORT INFORMATION
  Report Type: Other
  Country: US (occurrence: US)
  Receive Date: 20200624
  Receipt Date: 20200624
  Transmission Date: 20200714
  Serious: No
  Sender: FDA-Public Use
  Company Number: US-PRINSTON PHARMACEUTICAL INC.-2020PRN00015

PATIENT
  Age: 34 Year
  Sex: Male
  Weight: 54.42 kg

DRUGS (9)
  1. LOSARTAN POTASSIUM. [Suspect]
     Active Substance: LOSARTAN POTASSIUM
     Indication: HYPERTENSION
     Dosage: 75 MG, 1X/DAY ^AROUND 9:00 AM^
     Route: 048
  2. FLAXSEED [Concomitant]
     Active Substance: FLAX SEED
     Dosage: UNK
  3. LOSARTAN POTASSIUM. [Suspect]
     Active Substance: LOSARTAN POTASSIUM
     Dosage: 25 MG (CHEWED)
     Route: 048
     Dates: start: 20191122, end: 20191122
  4. LOSARTAN POTASSIUM. [Suspect]
     Active Substance: LOSARTAN POTASSIUM
     Dosage: 75 MG, 1X/DAY ^AROUND 9:00 AM^
     Route: 048
     Dates: start: 20191126, end: 20191126
  5. LOSARTAN POTASSIUM. [Suspect]
     Active Substance: LOSARTAN POTASSIUM
     Dosage: 75 MG, 1X/DAY ^AROUND 9:00 AM^
     Route: 048
     Dates: start: 20191121, end: 20191122
  6. LOSARTAN POTASSIUM. [Suspect]
     Active Substance: LOSARTAN POTASSIUM
     Dosage: 75 MG, 1X/DAY ^AROUND 9:00 AM^
     Route: 048
     Dates: start: 20191123, end: 20191125
  7. LOSARTAN POTASSIUM. [Suspect]
     Active Substance: LOSARTAN POTASSIUM
     Dosage: 75 MG, 1X/DAY ^AROUND 9:00 AM^
     Route: 048
     Dates: start: 20191127, end: 201911
  8. MULTIVITAMIN [Concomitant]
     Active Substance: VITAMINS
     Dosage: UNK
  9. LOSARTAN POTASSIUM. [Suspect]
     Active Substance: LOSARTAN POTASSIUM
     Dosage: 25 MG (CHEWED)
     Route: 048
     Dates: start: 20191126, end: 20191126

REACTIONS (5)
  - Hyperhidrosis [Recovered/Resolved]
  - Nervousness [Recovered/Resolved]
  - Dizziness [Recovered/Resolved]
  - Headache [Recovered/Resolved]
  - Blood pressure increased [Recovered/Resolved]

NARRATIVE: CASE EVENT DATE: 20191122
